FAERS Safety Report 6074438-3 (Version None)
Quarter: 2009Q1

REPORT INFORMATION
  Report Type: 
  Country: None (occurrence: None)
  Receive Date: 20090206
  Receipt Date: 20090129
  Transmission Date: 20090719
  Serious: Yes (Life-Threatening)
  Sender: FDA-Public Use
  Company Number: 163414

PATIENT

DRUGS (1)
  1. BUPIVACAINE HCL INJ,             (BUPIVACAINE) [Suspect]
     Indication: ANAESTHESIA

REACTIONS (2)
  - BRUGADA SYNDROME [None]
  - SUDDEN CARDIAC DEATH [None]
